FAERS Safety Report 17765488 (Version 1)
Quarter: 2020Q2

REPORT INFORMATION
  Report Type: Spontaneous
  Country: US (occurrence: US)
  Receive Date: 20200508
  Receipt Date: 20200508
  Transmission Date: 20200714
  Serious: No
  Sender: FDA-Public Use
  Company Number: None

PATIENT
  Sex: Female

DRUGS (8)
  1. FOLIC ACID. [Concomitant]
     Active Substance: FOLIC ACID
  2. DEMEROL [Suspect]
     Active Substance: MEPERIDINE HYDROCHLORIDE
  3. EZETIMBE [Concomitant]
     Active Substance: EZETIMIBE
  4. FEROSUL [Concomitant]
     Active Substance: FERROUS SULFATE
  5. LORAZEPAM. [Concomitant]
     Active Substance: LORAZEPAM
  6. FLAX SEED [Concomitant]
     Active Substance: FLAX SEED
  7. FLUMAZENIL. [Suspect]
     Active Substance: FLUMAZENIL
  8. OCALIVA [Suspect]
     Active Substance: OBETICHOLIC ACID
     Indication: PRIMARY BILIARY CHOLANGITIS
     Route: 048
     Dates: start: 20191119

REACTIONS (1)
  - Pruritus [None]
